FAERS Safety Report 5876505-3 (Version None)
Quarter: 2008Q3

REPORT INFORMATION
  Report Type: 
  Country: None (occurrence: None)
  Receive Date: 20080910
  Receipt Date: 20080902
  Transmission Date: 20090109
  Serious: Yes (Other)
  Sender: FDA-Public Use
  Company Number: B0527308A

PATIENT
  Age: 45 Year
  Sex: Female

DRUGS (3)
  1. COMBIVIR [Suspect]
     Indication: HIV INFECTION
     Dosage: 1TAB TWICE PER DAY
     Route: 048
     Dates: start: 20080627
  2. REYATAZ [Suspect]
     Indication: HIV INFECTION
     Dosage: 150MG PER DAY
     Route: 048
  3. NORVIR [Suspect]
     Indication: HIV INFECTION
     Dosage: 1CAP PER DAY
     Route: 048

REACTIONS (5)
  - DIARRHOEA [None]
  - HEADACHE [None]
  - HEPATITIS [None]
  - PHARMACEUTICAL PRODUCT COMPLAINT [None]
  - VOMITING [None]
